FAERS Safety Report 15947725 (Version 1)
Quarter: 2019Q1

REPORT INFORMATION
  Report Type: Spontaneous
  Country: US (occurrence: US)
  Receive Date: 20190212
  Receipt Date: 20190212
  Transmission Date: 20190417
  Serious: Yes (Other)
  Sender: FDA-Public Use
  Company Number: US-ROCHE-2262446

PATIENT

DRUGS (6)
  1. RITUXAN [Suspect]
     Active Substance: RITUXIMAB
     Indication: RHEUMATOID ARTHRITIS
     Route: 065
  2. ENBREL [Concomitant]
     Active Substance: ETANERCEPT
  3. ORENCIA [Concomitant]
     Active Substance: ABATACEPT
  4. METHOTREXATE. [Concomitant]
     Active Substance: METHOTREXATE
  5. HUMIRA [Concomitant]
     Active Substance: ADALIMUMAB
  6. CIMZIA [Concomitant]
     Active Substance: CERTOLIZUMAB PEGOL

REACTIONS (1)
  - Psoriasis [Unknown]
